FAERS Safety Report 18746904 (Version 2)
Quarter: 2021Q1

REPORT INFORMATION
  Report Type: Spontaneous
  Country: NL (occurrence: NL)
  Receive Date: 20210115
  Receipt Date: 20210128
  Transmission Date: 20210419
  Serious: Yes (Other)
  Sender: FDA-Public Use
  Company Number: NL-009507513-2101NLD004641

PATIENT
  Age: 51 Year
  Sex: Male

DRUGS (1)
  1. PEGINTERFERON ALFA?2B/RIBAVIRIN [Suspect]
     Active Substance: PEGINTERFERON ALFA-2B\RIBAVIRIN
     Indication: HEPATITIS E
     Dosage: UNK
     Route: 048

REACTIONS (2)
  - Pathogen resistance [Unknown]
  - Off label use [Unknown]
